FAERS Safety Report 9732265 (Version 2)
Quarter: 2019Q2

REPORT INFORMATION
  Report Type: Spontaneous
  Country: IT (occurrence: IT)
  Receive Date: 20131205
  Receipt Date: 20190530
  Transmission Date: 20190711
  Serious: Yes (Hospitalization, Disabling, Other)
  Sender: FDA-Public Use
  Company Number: IT-SA-2013SA123352

PATIENT
  Age: 72 Year
  Sex: Male

DRUGS (13)
  1. BISOPROLOL SALT NOT SPECIFIED [Interacting]
     Active Substance: BISOPROLOL
     Dosage: 2.5 MG,QD
     Route: 065
  2. ATORVASTATIN [Interacting]
     Active Substance: ATORVASTATIN
     Indication: HYPERCHOLESTEROLAEMIA
     Dosage: 40 MG,QD
     Route: 065
     Dates: end: 2011
  3. SERTRALINE [Interacting]
     Active Substance: SERTRALINE HYDROCHLORIDE
     Indication: NEUROPSYCHIATRIC SYMPTOMS
     Dosage: 25 MG,QD
     Route: 065
  4. CITRIC ACID [Concomitant]
     Active Substance: CITRIC ACID MONOHYDRATE
     Dosage: 1000 MG,QD
  5. ATORVASTATIN [Interacting]
     Active Substance: ATORVASTATIN
     Indication: HYPERTRIGLYCERIDAEMIA
  6. VALSARTAN. [Interacting]
     Active Substance: VALSARTAN
     Dosage: 20 MG,QD
     Route: 065
  7. FUROSEMIDE. [Suspect]
     Active Substance: FUROSEMIDE
     Indication: DIURETIC THERAPY
     Dosage: 25 MG,BIW
     Route: 065
  8. ALLOPURINOL. [Interacting]
     Active Substance: ALLOPURINOL
     Dosage: 150 MG,QD
     Route: 065
  9. ACETYLSALICYLIC ACID [Interacting]
     Active Substance: ASPIRIN
     Dosage: 100 MG,QD
     Route: 065
  10. RANOLAZINE. [Interacting]
     Active Substance: RANOLAZINE
     Indication: ANGINA PECTORIS
     Dosage: 1000 MG, QD
     Route: 065
     Dates: start: 201107
  11. QUETIAPINE [QUETIAPINE FUMARATE] [Interacting]
     Active Substance: QUETIAPINE FUMARATE
     Indication: NEUROPSYCHIATRIC SYMPTOMS
     Dosage: 50 MG,QD
     Route: 065
  12. OMEPRAZOLE. [Interacting]
     Active Substance: OMEPRAZOLE
     Dosage: 20 MG,QD
     Route: 065
  13. GLYCERYL TRINITRATE [Concomitant]
     Active Substance: NITROGLYCERIN
     Indication: PRODUCT USED FOR UNKNOWN INDICATION
     Dosage: 10 MG,QD
     Route: 062

REACTIONS (10)
  - Fall [Unknown]
  - Blood creatine phosphokinase increased [Recovered/Resolved]
  - Myalgia [Recovered/Resolved]
  - Drop attacks [Unknown]
  - Myoglobin blood increased [Recovered/Resolved]
  - Drug interaction [Recovered/Resolved]
  - Rhabdomyolysis [Recovered/Resolved]
  - Asthenia [Recovered/Resolved]
  - Malaise [Recovered/Resolved]
  - Gait disturbance [Unknown]

NARRATIVE: CASE EVENT DATE: 20110901
